FAERS Safety Report 25504165 (Version 4)
Quarter: 2025Q4

REPORT INFORMATION
  Report Type: Report from Study
  Country: US (occurrence: US)
  Receive Date: 20250702
  Receipt Date: 20251007
  Transmission Date: 20260118
  Serious: Yes (Other)
  Sender: SUNOVION
  Company Number: US-SMPA-2025SPA007285AA

PATIENT
  Age: 64 Year
  Sex: Male

DRUGS (14)
  1. ORGOVYX [Suspect]
     Active Substance: RELUGOLIX
     Indication: Prostate cancer
     Dosage: 360 MG, SINGLE
     Route: 048
     Dates: start: 20250430, end: 20250430
  2. ORGOVYX [Suspect]
     Active Substance: RELUGOLIX
     Dosage: 120 MG, QD
     Route: 048
     Dates: start: 20250501
  3. ALLOPURINOL [Concomitant]
     Active Substance: ALLOPURINOL
  4. AMLODIPINE [Concomitant]
     Active Substance: AMLODIPINE BESYLATE
  5. ASPIRIN [Concomitant]
     Active Substance: ASPIRIN
  6. INDOMETHACIN [Concomitant]
     Active Substance: INDOMETHACIN
  7. LISINOPRIL [Concomitant]
     Active Substance: LISINOPRIL
  8. DIALYVITE [Concomitant]
     Active Substance: ASCORBIC ACID\BIOTIN\CALCIUM PANTOTHENATE\COBALAMIN\FOLIC ACID\NIACINAMIDE\PYRIDOXINE HYDROCHLORIDE\
  9. OZEMPIC [Concomitant]
     Active Substance: SEMAGLUTIDE
  10. ROSUVASTATIN [Concomitant]
     Active Substance: ROSUVASTATIN
  11. SILDENAFIL [Concomitant]
     Active Substance: SILDENAFIL
  12. CALCIUM [Concomitant]
     Active Substance: CALCIUM
     Dosage: 600 UNK
  13. FLUOCINONIDE [Concomitant]
     Active Substance: FLUOCINONIDE
  14. VITAMIN D3 [Concomitant]
     Active Substance: CHOLECALCIFEROL
     Dosage: UNK

REACTIONS (4)
  - Gingival operation [Unknown]
  - Flatulence [Unknown]
  - Abdominal discomfort [Unknown]
  - Fatigue [Unknown]
